FAERS Safety Report 12905167 (Version 1)
Quarter: 2016Q4

REPORT INFORMATION
  Report Type: Spontaneous
  Country: DE (occurrence: DE)
  Receive Date: 20161102
  Receipt Date: 20161102
  Transmission Date: 20170207
  Serious: Yes (Death)
  Sender: FDA-Public Use
  Company Number: DE-ASTRAZENECA-2016SF14217

PATIENT
  Age: 15 Year
  Sex: Female
  Weight: 60 kg

DRUGS (2)
  1. MITRAZAPIN [Suspect]
     Active Substance: MIRTAZAPINE
     Indication: SUICIDAL IDEATION
     Dosage: 29G QUETIAPIN AND 700MG MIRTAZAPIN
     Route: 048
     Dates: start: 20160921
  2. QUETIAPIN [Suspect]
     Active Substance: QUETIAPINE
     Indication: SUICIDAL IDEATION
     Dosage: 29G QUETIAPIN AND 700MG MIRTAZAPIN
     Route: 048
     Dates: start: 20160921

REACTIONS (4)
  - Completed suicide [Fatal]
  - Intentional overdose [None]
  - Acute respiratory distress syndrome [Fatal]
  - Overdose [Unknown]

NARRATIVE: CASE EVENT DATE: 20160921
